FAERS Safety Report 25343520 (Version 3)
Quarter: 2025Q2

REPORT INFORMATION
  Report Type: Report from Study
  Country: US (occurrence: US)
  Receive Date: 20250521
  Receipt Date: 20250611
  Transmission Date: 20250716
  Serious: Yes (Life-Threatening)
  Sender: MALLINCKRODT
  Company Number: US-MALLINCKRODT-MNK202502880

PATIENT
  Age: 11 Month
  Sex: Female
  Weight: 7 kg

DRUGS (1)
  1. CORTICOTROPIN [Suspect]
     Active Substance: CORTICOTROPIN
     Indication: Infantile spasms
     Route: 030
     Dates: start: 20250427

REACTIONS (2)
  - Seizure [Recovered/Resolved]
  - Myoclonus [Unknown]

NARRATIVE: CASE EVENT DATE: 20250501
